FAERS Safety Report 16349187 (Version 5)
Quarter: 2020Q1

REPORT INFORMATION
  Report Type: Spontaneous
  Country: US (occurrence: US)
  Receive Date: 20190523
  Receipt Date: 20200122
  Transmission Date: 20200409
  Serious: Yes (Hospitalization, Other)
  Sender: FDA-Public Use
  Company Number: US-BOIRON INC.-2019BOR00058

PATIENT
  Age: 63 Year
  Sex: Female
  Weight: 71.2 kg

DRUGS (13)
  1. CALENDULA CREAM [Suspect]
     Active Substance: CALENDULA OFFICINALIS FLOWERING TOP
     Indication: PAIN OF SKIN
  2. EXCEDRIN [Concomitant]
     Active Substance: ACETAMINOPHEN\ASPIRIN\CAFFEINE
     Dosage: UNK, AS NEEDED
  3. HYDROCODONE BITARTRATE AND ACETAMINOPHEN [Concomitant]
     Active Substance: ACETAMINOPHEN\HYDROCODONE BITARTRATE
     Dosage: 7.5/325 EVERY 8 HOURS, AS NEEDED FOR PAIN
  4. HYDROCODONE BITARTRATE AND ACETAMINOPHEN [Concomitant]
     Active Substance: ACETAMINOPHEN\HYDROCODONE BITARTRATE
     Dosage: 7.5/325 EVERY 6 HOURS, AS NEEDED FOR PAIN
  5. CALENDULA CREAM [Suspect]
     Active Substance: CALENDULA OFFICINALIS FLOWERING TOP
     Indication: RADIATION ASSOCIATED PAIN
     Dosage: UNK, 2X/DAY
     Route: 061
     Dates: start: 201904, end: 20190419
  6. CALENDULA CREAM [Suspect]
     Active Substance: CALENDULA OFFICINALIS FLOWERING TOP
     Indication: SKIN IRRITATION
  7. HYDROCODONE [Concomitant]
     Active Substance: HYDROCODONE
  8. SOMA [Concomitant]
     Active Substance: CARISOPRODOL
     Dosage: 350 MG, 3X/DAY
  9. LINZESS [Concomitant]
     Active Substance: LINACLOTIDE
     Dosage: 145 MG, 1X/DAY
  10. CALENDULA CREAM [Suspect]
     Active Substance: CALENDULA OFFICINALIS FLOWERING TOP
     Indication: PRURITUS
  11. MOTRIN [Concomitant]
     Active Substance: IBUPROFEN
     Dosage: UNK, AS NEEDED
  12. METOPROLOL SUCCINATE. [Concomitant]
     Active Substance: METOPROLOL SUCCINATE
     Dosage: 50 MG, 1X/DAY
  13. VALSARTAN. [Concomitant]
     Active Substance: VALSARTAN
     Dosage: 80 MG, 1X/DAY

REACTIONS (21)
  - Dysphagia [Unknown]
  - Suicidal ideation [Unknown]
  - Skin tightness [Unknown]
  - Skin exfoliation [Unknown]
  - Lethargy [Unknown]
  - Scab [Recovering/Resolving]
  - Skin lesion [Unknown]
  - Pruritus [Unknown]
  - Depression [Not Recovered/Not Resolved]
  - Pain [Unknown]
  - Skin ulcer [Recovering/Resolving]
  - Fear [Not Recovered/Not Resolved]
  - Weight decreased [Unknown]
  - Application site burn [Recovering/Resolving]
  - Skin discolouration [Unknown]
  - Pruritus [Not Recovered/Not Resolved]
  - Asthenia [Unknown]
  - Dehydration [Recovered/Resolved]
  - Burns first degree [Unknown]
  - Musculoskeletal stiffness [Unknown]
  - Decreased appetite [Unknown]

NARRATIVE: CASE EVENT DATE: 2019
